FAERS Safety Report 23285487 (Version 1)
Quarter: 2023Q4

REPORT INFORMATION
  Report Type: Spontaneous
  Country: CN (occurrence: CN)
  Receive Date: 20231211
  Receipt Date: 20231211
  Transmission Date: 20240110
  Serious: Yes (Other)
  Sender: FDA-Public Use
  Company Number: None

PATIENT
  Age: 71 Year
  Sex: Female
  Weight: 58 kg

DRUGS (2)
  1. MANNITOL [Suspect]
     Active Substance: MANNITOL
     Indication: Oedema
     Dosage: 100 ML, TWICE DAILY (DOSAGE FORM: INJECTION)
     Route: 041
     Dates: start: 20231130, end: 20231130
  2. MANNITOL [Suspect]
     Active Substance: MANNITOL
     Indication: Dehydration

REACTIONS (2)
  - Tremor [Recovered/Resolved]
  - Pyrexia [Recovered/Resolved]

NARRATIVE: CASE EVENT DATE: 20231130
